FAERS Safety Report 21173581 (Version 13)
Quarter: 2022Q4

REPORT INFORMATION
  Report Type: Report from Study
  Country: KR (occurrence: None)
  Receive Date: 20220804
  Receipt Date: 20221130
  Transmission Date: 20230113
  Serious: Yes (Life-Threatening, Hospitalization)
  Sender: FDA-Public Use
  Company Number: KR-Eisai Medical Research-EC-2022-119086

PATIENT
  Age: 48 Year
  Sex: Female
  Weight: 50.5 kg

DRUGS (12)
  1. LENVATINIB [Suspect]
     Active Substance: LENVATINIB
     Indication: Clear cell renal cell carcinoma
     Route: 048
     Dates: start: 20220525, end: 20220708
  2. LENVATINIB [Suspect]
     Active Substance: LENVATINIB
     Route: 048
     Dates: start: 20220812
  3. PEMBROLIZUMAB [Suspect]
     Active Substance: PEMBROLIZUMAB
     Indication: Clear cell renal cell carcinoma
     Route: 041
     Dates: start: 20220518, end: 20220629
  4. BELZUTIFAN [Suspect]
     Active Substance: BELZUTIFAN
     Indication: Clear cell renal cell carcinoma
     Route: 048
     Dates: start: 20220518, end: 20220708
  5. AMLODIPINE [Concomitant]
     Active Substance: AMLODIPINE BESYLATE
     Indication: Product used for unknown indication
     Dates: start: 202101, end: 20220822
  6. CARVEDILOL [Concomitant]
     Active Substance: CARVEDILOL
     Dates: start: 20220518, end: 20220801
  7. UREA [Concomitant]
     Active Substance: UREA
     Dates: start: 20220603, end: 20220629
  8. CLOBETASOL [Concomitant]
     Active Substance: CLOBETASOL
     Dosage: DISC
     Dates: start: 20220603, end: 20220629
  9. SANTAMON PLUS [Concomitant]
     Dates: start: 20220428, end: 20220810
  10. TANTUM [BENZYDAMINE HYDROCHLORIDE] [Concomitant]
     Dates: start: 20220608, end: 20220709
  11. MOSAPRIDE CITRATE [Concomitant]
     Active Substance: MOSAPRIDE CITRATE
     Dates: start: 20220622, end: 20220629
  12. GASTER [Concomitant]
     Active Substance: FAMOTIDINE
     Dates: start: 20220622, end: 20220629

REACTIONS (1)
  - Ejection fraction decreased [Recovered/Resolved]

NARRATIVE: CASE EVENT DATE: 20220708
